FAERS Safety Report 20063313 (Version 1)
Quarter: 2021Q4

REPORT INFORMATION
  Report Type: Report from Study
  Country: US (occurrence: US)
  Receive Date: 20211112
  Receipt Date: 20211112
  Transmission Date: 20220303
  Serious: Yes (Other)
  Sender: FDA-Public Use
  Company Number: US-TAKEDA-2021TUS051657

PATIENT
  Age: 66 Year
  Sex: Male
  Weight: 82 kg

DRUGS (29)
  1. HUMAN IMMUNOGLOBULIN G [Suspect]
     Active Substance: HUMAN IMMUNOGLOBULIN G
     Indication: Immunodeficiency common variable
     Dosage: 16 GRAM, 1/WEEK
     Route: 058
     Dates: start: 20200501
  2. COVID-19 VACCINE NOS [Suspect]
     Active Substance: COVID-19 VACCINE NOS
     Indication: Product used for unknown indication
     Dosage: UNK
     Route: 065
  3. ACETAMINOPHEN [Concomitant]
     Active Substance: ACETAMINOPHEN
  4. DIPHENHYDRAMINE [Concomitant]
     Active Substance: DIPHENHYDRAMINE
  5. EPINEPHRINE [Concomitant]
     Active Substance: EPINEPHRINE
  6. Lmx [Concomitant]
  7. TRAMADOL [Concomitant]
     Active Substance: TRAMADOL
  8. MELOXICAM [Concomitant]
     Active Substance: MELOXICAM
  9. GABAPENTIN [Concomitant]
     Active Substance: GABAPENTIN
  10. ZYRTEC [Concomitant]
     Active Substance: CETIRIZINE HYDROCHLORIDE
  11. VITAMIN C [Concomitant]
     Active Substance: ASCORBIC ACID
  12. VITAMIN D3 [Concomitant]
     Active Substance: CHOLECALCIFEROL
  13. TAMSULOSIN [Concomitant]
     Active Substance: TAMSULOSIN
  14. VITAMIN B [Concomitant]
     Active Substance: VITAMIN B
  15. SODIUM CHLORIDE [Concomitant]
     Active Substance: SODIUM CHLORIDE
  16. GAMUNEX [Concomitant]
     Active Substance: HUMAN IMMUNOGLOBULIN G
  17. MINERALS\VITAMINS [Concomitant]
     Active Substance: MINERALS\VITAMINS
  18. LOTENSIN [Concomitant]
     Active Substance: BENAZEPRIL HYDROCHLORIDE
  19. NAPROXEN [Concomitant]
     Active Substance: NAPROXEN
  20. BUPROPION [Concomitant]
     Active Substance: BUPROPION
  21. QNASL [Concomitant]
     Active Substance: BECLOMETHASONE DIPROPIONATE
  22. ASPIRIN [Concomitant]
     Active Substance: ASPIRIN
  23. PROAIR HFA [Concomitant]
     Active Substance: ALBUTEROL SULFATE
  24. ROSUVASTATIN [Concomitant]
     Active Substance: ROSUVASTATIN
  25. GLUCOSAMINE [Concomitant]
     Active Substance: GLUCOSAMINE
  26. JANUVIA [Concomitant]
     Active Substance: SITAGLIPTIN PHOSPHATE
  27. SINGULAIR [Concomitant]
     Active Substance: MONTELUKAST SODIUM
  28. OMEPRAZOLE [Concomitant]
     Active Substance: OMEPRAZOLE
  29. CALCIUM [Concomitant]
     Active Substance: CALCIUM

REACTIONS (6)
  - Device dislocation [Unknown]
  - COVID-19 [Recovered/Resolved]
  - Weight fluctuation [Unknown]
  - COVID-19 immunisation [Unknown]
  - Vaccination failure [Unknown]
  - Product leakage [Unknown]

NARRATIVE: CASE EVENT DATE: 20210723
